FAERS Safety Report 9814136 (Version 3)
Quarter: 2014Q2

REPORT INFORMATION
  Report Type: Spontaneous
  Country: US (occurrence: US)
  Receive Date: 20140113
  Receipt Date: 20140408
  Transmission Date: 20141212
  Serious: Yes (Other)
  Sender: FDA-Public Use
  Company Number: US-ASTELLAS-2013US012637

PATIENT
  Sex: Male

DRUGS (2)
  1. MYRBETRIQ [Suspect]
     Indication: HYPERTONIC BLADDER
     Dosage: 25 MG, ONCE DAILY
     Route: 048
     Dates: start: 201311
  2. MYRBETRIQ [Suspect]
     Dosage: 50 MG, ONCE DAILY
     Route: 048
     Dates: start: 201402

REACTIONS (3)
  - Drug ineffective [Unknown]
  - Urine flow decreased [Unknown]
  - Nocturia [Recovering/Resolving]
